FAERS Safety Report 13840692 (Version 1)
Quarter: 2017Q3

REPORT INFORMATION
  Report Type: Spontaneous
  Country: IL (occurrence: IL)
  Receive Date: 20170807
  Receipt Date: 20170807
  Transmission Date: 20171127
  Serious: Yes (Hospitalization, Other)
  Sender: FDA-Public Use
  Company Number: IL-JNJFOC-20170803754

PATIENT
  Age: 73 Year
  Sex: Female

DRUGS (2)
  1. AMIODARONE [Concomitant]
     Active Substance: AMIODARONE
     Route: 065
  2. XARELTO [Suspect]
     Active Substance: RIVAROXABAN
     Indication: PRODUCT USED FOR UNKNOWN INDICATION
     Route: 048
     Dates: end: 20170723

REACTIONS (10)
  - Joint effusion [Unknown]
  - Joint swelling [Unknown]
  - Bursal fluid accumulation [Unknown]
  - Thrombosed varicose vein [Unknown]
  - Arthralgia [Recovered/Resolved]
  - Arthralgia [Not Recovered/Not Resolved]
  - Stasis dermatitis [Unknown]
  - Haemarthrosis [Not Recovered/Not Resolved]
  - Pain in extremity [Recovered/Resolved]
  - Joint warmth [Unknown]

NARRATIVE: CASE EVENT DATE: 20170716
